FAERS Safety Report 11680093 (Version 3)
Quarter: 2015Q4

REPORT INFORMATION
  Report Type: Spontaneous
  Country: US (occurrence: US)
  Receive Date: 20151027
  Receipt Date: 20151110
  Transmission Date: 20160304
  Serious: No
  Sender: FDA-Public Use
  Company Number: US-ELI_LILLY_AND_COMPANY-US201004007212

PATIENT
  Sex: Female

DRUGS (2)
  1. FORTEO [Suspect]
     Active Substance: TERIPARATIDE
     Indication: OSTEOPOROSIS
     Dosage: UNK, UNKNOWN
     Route: 065
  2. ESTROGEN NOS [Concomitant]
     Active Substance: ESTROGENS

REACTIONS (14)
  - Osteoarthritis [Unknown]
  - General physical health deterioration [Unknown]
  - Nervous system disorder [Unknown]
  - Cerebral disorder [Unknown]
  - Arthralgia [Not Recovered/Not Resolved]
  - Nasopharyngitis [Unknown]
  - Diverticulitis [Unknown]
  - Night sweats [Unknown]
  - Hernia [Unknown]
  - Nervousness [Unknown]
  - Abdominal pain upper [Unknown]
  - Tremor [Recovered/Resolved]
  - Gastrointestinal motility disorder [Unknown]
  - Depression [Unknown]
